FAERS Safety Report 22197241 (Version 2)
Quarter: 2023Q2

REPORT INFORMATION
  Report Type: Spontaneous
  Country: GR (occurrence: GR)
  Receive Date: 20230411
  Receipt Date: 20230522
  Transmission Date: 20230722
  Serious: Yes (Other)
  Sender: FDA-Public Use
  Company Number: GR-ROCHE-3318815

PATIENT
  Age: 85 Year
  Sex: Male

DRUGS (7)
  1. DOXORUBICIN HYDROCHLORIDE [Suspect]
     Active Substance: DOXORUBICIN HYDROCHLORIDE
     Dosage: UNK
     Route: 065
  2. RITUXIMAB [Suspect]
     Active Substance: RITUXIMAB
     Dosage: UNK
     Route: 065
  3. BENDAMUSTINE [Suspect]
     Active Substance: BENDAMUSTINE
     Dosage: UNK
     Route: 065
  4. CYCLOPHOSPHAMIDE [Suspect]
     Active Substance: CYCLOPHOSPHAMIDE
     Dosage: UNK
     Route: 065
  5. PREDNISONE [Suspect]
     Active Substance: PREDNISONE
     Dosage: UNK
     Route: 065
  6. POLATUZUMAB VEDOTIN [Suspect]
     Active Substance: POLATUZUMAB VEDOTIN
     Dosage: UNK
     Route: 065
  7. VINCRISTINE [Suspect]
     Active Substance: VINCRISTINE
     Dosage: UNK
     Route: 065

REACTIONS (8)
  - Hyperleukocytosis [Unknown]
  - Blood lactate dehydrogenase increased [Unknown]
  - Retroperitoneal lymphadenopathy [Unknown]
  - Anaemia [Unknown]
  - Lymphadenopathy mediastinal [Unknown]
  - Oedema [Unknown]
  - Ill-defined disorder [Unknown]
  - Neoplasm progression [Unknown]
